FAERS Safety Report 25673729 (Version 1)
Quarter: 2025Q3

REPORT INFORMATION
  Report Type: Spontaneous
  Country: US (occurrence: US)
  Receive Date: 20250813
  Receipt Date: 20250813
  Transmission Date: 20251020
  Serious: No
  Sender: ALEXION PHARMACEUTICALS
  Company Number: US-AstraZeneca-CH-00927086A

PATIENT
  Sex: Female

DRUGS (2)
  1. SYMLIN [Suspect]
     Active Substance: PRAMLINTIDE ACETATE
     Indication: Type 1 diabetes mellitus
     Dosage: 60 MICROGRAM, AC?BEFORE MEALS
     Route: 065
  2. INSULIN NOS [Concomitant]
     Active Substance: INSULIN NOS
     Route: 065

REACTIONS (7)
  - Exposure during pregnancy [Recovered/Resolved]
  - Dumping syndrome [Recovering/Resolving]
  - Yawning [Unknown]
  - Pollakiuria [Unknown]
  - Ill-defined disorder [Unknown]
  - Fatigue [Unknown]
  - Insurance issue [Unknown]
